FAERS Safety Report 15896084 (Version 2)
Quarter: 2019Q3

REPORT INFORMATION
  Report Type: Spontaneous
  Country: US (occurrence: US)
  Receive Date: 20190131
  Receipt Date: 20190911
  Transmission Date: 20191004
  Serious: No
  Sender: FDA-Public Use
  Company Number: US-SA-2019SA023942

PATIENT
  Age: 66 Year
  Sex: Female

DRUGS (2)
  1. PRALUENT [Suspect]
     Active Substance: ALIROCUMAB
     Dosage: 150 MG, OTHER
     Route: 058
     Dates: start: 201901
  2. PRALUENT [Suspect]
     Active Substance: ALIROCUMAB
     Dosage: 150 MG
     Route: 058
     Dates: start: 201812

REACTIONS (5)
  - Sluggishness [Unknown]
  - Feeling abnormal [Unknown]
  - Muscle spasms [Unknown]
  - Bradyphrenia [Unknown]
  - Fatigue [Unknown]

NARRATIVE: CASE EVENT DATE: 20181225
